FAERS Safety Report 9563540 (Version 1)
Quarter: 2013Q3

REPORT INFORMATION
  Report Type: Spontaneous
  Country: US (occurrence: None)
  Receive Date: 20130926
  Receipt Date: 20130926
  Transmission Date: 20140515
  Serious: Yes (Hospitalization)
  Sender: FDA-Public Use
  Company Number: None

PATIENT
  Age: 59 Year
  Sex: Male
  Weight: 78 kg

DRUGS (2)
  1. CARBOPLATIN [Suspect]
  2. PACLITAXEL [Suspect]

REACTIONS (9)
  - Nausea [None]
  - Vomiting [None]
  - Skin lesion [None]
  - Pneumonia [None]
  - Vena cava thrombosis [None]
  - Tachycardia [None]
  - Hypotension [None]
  - Respiratory failure [None]
  - Sepsis [None]
